FAERS Safety Report 23864282 (Version 1)
Quarter: 2024Q2

REPORT INFORMATION
  Report Type: Spontaneous
  Country: ES (occurrence: ES)
  Receive Date: 20240516
  Receipt Date: 20240516
  Transmission Date: 20240716
  Serious: Yes (Other)
  Sender: FDA-Public Use
  Company Number: ES-BAYER-2024A068676

PATIENT
  Age: 51 Year
  Sex: Male

DRUGS (11)
  1. RADIUM RA-223 DICHLORIDE [Suspect]
     Active Substance: RADIUM RA-223 DICHLORIDE
     Indication: Hormone-dependent prostate cancer
     Dosage: 1ST CYCLE
     Dates: start: 20220910, end: 20220910
  2. RADIUM RA-223 DICHLORIDE [Suspect]
     Active Substance: RADIUM RA-223 DICHLORIDE
     Indication: Hormone-dependent prostate cancer
     Dosage: 2ND CYCLE
  3. RADIUM RA-223 DICHLORIDE [Suspect]
     Active Substance: RADIUM RA-223 DICHLORIDE
     Indication: Hormone-dependent prostate cancer
     Dosage: 3RD CYCLE
  4. RADIUM RA-223 DICHLORIDE [Suspect]
     Active Substance: RADIUM RA-223 DICHLORIDE
     Indication: Hormone-dependent prostate cancer
     Dosage: 4TH CYCLE
  5. RADIUM RA-223 DICHLORIDE [Suspect]
     Active Substance: RADIUM RA-223 DICHLORIDE
     Indication: Hormone-dependent prostate cancer
     Dosage: 5TH CYCLE
  6. RADIUM RA-223 DICHLORIDE [Suspect]
     Active Substance: RADIUM RA-223 DICHLORIDE
     Indication: Hormone-dependent prostate cancer
     Dosage: 6TH CYCLE
     Dates: start: 20230217, end: 20230217
  7. CABAZITAXEL [Concomitant]
     Active Substance: CABAZITAXEL
     Dosage: 20 MG/M2 (1ST CYCLE)
     Dates: start: 20230615
  8. CABAZITAXEL [Concomitant]
     Active Substance: CABAZITAXEL
     Dosage: 2ND CYCLE
  9. CABAZITAXEL [Concomitant]
     Active Substance: CABAZITAXEL
     Dosage: 3RD CYCLE
  10. CABAZITAXEL [Concomitant]
     Active Substance: CABAZITAXEL
     Dosage: 4TH CYCLE
  11. CABAZITAXEL [Concomitant]
     Active Substance: CABAZITAXEL
     Dosage: 5TH CYCLE
     Dates: end: 20230907

REACTIONS (1)
  - Prostatic specific antigen increased [None]
